FAERS Safety Report 19074296 (Version 1)
Quarter: 2021Q1

REPORT INFORMATION
  Report Type: Spontaneous
  Country: JP (occurrence: JP)
  Receive Date: 20210330
  Receipt Date: 20210330
  Transmission Date: 20210420
  Serious: Yes (Other)
  Sender: FDA-Public Use
  Company Number: JP-FRESENIUS KABI-FK202103269

PATIENT
  Sex: Female

DRUGS (2)
  1. RITODRINE [Suspect]
     Active Substance: RITODRINE
     Indication: TOCOLYSIS
     Route: 065
  2. MAGNESIUM SULFATE (MANUFACTURER UNKNOWN) [Suspect]
     Active Substance: MAGNESIUM SULFATE
     Indication: TOCOLYSIS
     Route: 065

REACTIONS (2)
  - Osteoporosis [Unknown]
  - Exposure during pregnancy [Unknown]
